FAERS Safety Report 5352845-1 (Version None)
Quarter: 2007Q2

REPORT INFORMATION
  Report Type: 
  Country: None (occurrence: None)
  Receive Date: 20070611
  Receipt Date: 20070601
  Transmission Date: 20071010
  Serious: Yes (Death, Other)
  Sender: FDA-Public Use
  Company Number: ES-ELI_LILLY_AND_COMPANY-ES200706000968

PATIENT
  Age: 38 Year
  Sex: Male

DRUGS (1)
  1. OLANZAPINE [Suspect]

REACTIONS (2)
  - DEATH [None]
  - OVERDOSE [None]
